FAERS Safety Report 11473823 (Version 1)
Quarter: 2015Q3

REPORT INFORMATION
  Report Type: Spontaneous
  Country: US (occurrence: US)
  Receive Date: 20150908
  Receipt Date: 20150908
  Transmission Date: 20151125
  Serious: No
  Sender: FDA-Public Use
  Company Number: ALCN2015US005647

PATIENT
  Age: 74 Year
  Sex: Female

DRUGS (1)
  1. ILEVRO [Suspect]
     Active Substance: NEPAFENAC
     Indication: PREOPERATIVE CARE
     Dosage: 1 GTT, UNK
     Route: 047
     Dates: start: 20150525

REACTIONS (1)
  - Glare [Not Recovered/Not Resolved]

NARRATIVE: CASE EVENT DATE: 20150529
